FAERS Safety Report 9324062 (Version 3)
Quarter: 2013Q3

REPORT INFORMATION
  Report Type: Other
  Country: NO (occurrence: NO)
  Receive Date: 20130603
  Receipt Date: 20130923
  Transmission Date: 20140515
  Serious: Yes (Death, Hospitalization, Other)
  Sender: FDA-Public Use
  Company Number: NO-MPIJNJ-2013-03989

PATIENT
  Sex: 0

DRUGS (6)
  1. VELCADE [Suspect]
     Indication: PLASMA CELL MYELOMA
     Dosage: 1.9 MG/M2, CYCLIC
     Route: 042
     Dates: start: 20110207, end: 20110610
  2. VELCADE [Suspect]
     Dosage: 1.3 MG, UNK
     Dates: start: 20110617, end: 20121113
  3. REVLIMID [Suspect]
     Indication: PLASMA CELL MYELOMA
     Dosage: 15 MG, UNK
     Dates: start: 20121128, end: 20121226
  4. DEXAMETHASONE [Suspect]
     Indication: PLASMA CELL MYELOMA
     Dosage: 80 MG, CYCLIC
     Route: 048
     Dates: start: 20110207, end: 20110610
  5. DEXAMETHASONE [Suspect]
     Dosage: 12 UNK, UNK
     Dates: start: 20110617, end: 20121113
  6. ASPIRINE [Concomitant]
     Indication: ARTERIOSCLEROSIS
     Dosage: 160 MG, UNK

REACTIONS (3)
  - Rectal adenocarcinoma [Fatal]
  - Pneumonia [Unknown]
  - Myocardial infarction [Unknown]
